FAERS Safety Report 12550262 (Version 1)
Quarter: 2016Q3

REPORT INFORMATION
  Report Type: Spontaneous
  Country: US (occurrence: US)
  Receive Date: 20160712
  Receipt Date: 20160712
  Transmission Date: 20161109
  Serious: No
  Sender: FDA-Public Use
  Company Number: GXBR2016US001908

PATIENT
  Sex: Female
  Weight: 6.58 kg

DRUGS (4)
  1. ALBUTEROL. [Concomitant]
     Active Substance: ALBUTEROL
     Indication: TOXOPLASMOSIS
     Dosage: UNK DF, UNK
     Route: 065
  2. LEUCOVORIN. [Concomitant]
     Active Substance: LEUCOVORIN
     Indication: TOXOPLASMOSIS
     Dosage: UNK DF, UNK
     Route: 065
  3. SULFADIAZINE TABLETS, USP [Suspect]
     Active Substance: SULFADIAZINE
     Indication: TOXOPLASMOSIS
     Dosage: UNK COMPOUNDED, UNK
     Route: 048
     Dates: start: 20160222, end: 20160426
  4. DARAPRIM [Suspect]
     Active Substance: PYRIMETHAMINE
     Indication: TOXOPLASMOSIS
     Dosage: UNK DF, UNK
     Route: 065

REACTIONS (1)
  - Neutrophil count decreased [Unknown]
